FAERS Safety Report 17037234 (Version 5)
Quarter: 2022Q2

REPORT INFORMATION
  Report Type: Spontaneous
  Country: US (occurrence: US)
  Receive Date: 20191115
  Receipt Date: 20220510
  Transmission Date: 20220720
  Serious: No
  Sender: FDA-Public Use
  Company Number: US-PFIZER INC-2019492243

PATIENT
  Age: 81 Year
  Sex: Female

DRUGS (1)
  1. XELJANZ XR [Suspect]
     Active Substance: TOFACITINIB CITRATE
     Dosage: 11 MG, 1X/DAY

REACTIONS (6)
  - Therapeutic product effect incomplete [Unknown]
  - Intentional product misuse [Unknown]
  - Intentional dose omission [Unknown]
  - Muscle spasms [Unknown]
  - Arthralgia [Unknown]
  - Increased tendency to bruise [Unknown]
